FAERS Safety Report 24399023 (Version 4)
Quarter: 2025Q1

REPORT INFORMATION
  Report Type: Spontaneous
  Country: US (occurrence: US)
  Receive Date: 20241004
  Receipt Date: 20250305
  Transmission Date: 20250409
  Serious: No
  Sender: KARYOPHARM THERAPEUTICS
  Company Number: US-KARYOPHARM-2024KPT001610

PATIENT

DRUGS (19)
  1. XPOVIO [Suspect]
     Active Substance: SELINEXOR
     Indication: Plasma cell myeloma
     Dosage: 20 MG, WEEKLY FOR 3 WEEKS ON, AND THEN 1 WEEK OFF
     Route: 048
  2. REVLIMID [Concomitant]
     Active Substance: LENALIDOMIDE
  3. ACYCLOVIR [Concomitant]
     Active Substance: ACYCLOVIR
  4. ALLOPURINOL [Concomitant]
     Active Substance: ALLOPURINOL
  5. BACTRIM [Concomitant]
     Active Substance: SULFAMETHOXAZOLE\TRIMETHOPRIM
  6. DARZALEX [Concomitant]
     Active Substance: DARATUMUMAB
  7. DEXAMETHASONE [Concomitant]
     Active Substance: DEXAMETHASONE
  8. ELIQUIS [Concomitant]
     Active Substance: APIXABAN
  9. ESTRACE [Concomitant]
     Active Substance: ESTRADIOL
  10. HYDROCHLOROTHIAZIDE [Concomitant]
     Active Substance: HYDROCHLOROTHIAZIDE
  11. OLMESARTAN [Concomitant]
     Active Substance: OLMESARTAN
  12. OXYCODONE [Concomitant]
     Active Substance: OXYCODONE
  13. RABEPRAZOLE [Concomitant]
     Active Substance: RABEPRAZOLE
  14. ZOFRAN [Concomitant]
     Active Substance: ONDANSETRON HYDROCHLORIDE
  15. GEMTESA [Concomitant]
     Active Substance: VIBEGRON
  16. HYDROCHLOROTHIAZIDE [Concomitant]
     Active Substance: HYDROCHLOROTHIAZIDE
  17. LENALIDOMIDE [Concomitant]
     Active Substance: LENALIDOMIDE
  18. NYSTATIN [Concomitant]
     Active Substance: NYSTATIN
  19. LEVOTHYROXINE [Concomitant]
     Active Substance: LEVOTHYROXINE

REACTIONS (3)
  - Diarrhoea [Not Recovered/Not Resolved]
  - Constipation [Unknown]
  - Nausea [Recovered/Resolved]
